FAERS Safety Report 17398212 (Version 2)
Quarter: 2020Q1

REPORT INFORMATION
  Report Type: Spontaneous
  Country: US (occurrence: US)
  Receive Date: 20200210
  Receipt Date: 20200228
  Transmission Date: 20200409
  Serious: Yes (Life-Threatening, Hospitalization, Other)
  Sender: FDA-Public Use
  Company Number: US-MYLANLABS-2020M1015088

PATIENT
  Age: 32 Year
  Sex: Female

DRUGS (10)
  1. NIFEDIPINE. [Suspect]
     Active Substance: NIFEDIPINE
     Indication: HYPERTENSION
     Route: 065
  2. ASPIRIN                            /00002701/ [Suspect]
     Active Substance: ASPIRIN
     Indication: PROPHYLAXIS
     Dosage: 81 MILLIGRAM
     Route: 065
  3. LACTATED RINGERS SOLUTION [Concomitant]
     Active Substance: CALCIUM CHLORIDE\POTASSIUM CHLORIDE\SODIUM CHLORIDE\SODIUM LACTATE
     Indication: RESUSCITATION
     Dosage: 1000 MILLILITER
     Route: 065
  4. NORMAL SALINE [Concomitant]
     Active Substance: SODIUM CHLORIDE
     Indication: PRODUCT USED FOR UNKNOWN INDICATION
     Dosage: 18 U/H OF OXYTOCIN (16ML/H SODIUM CHLORIDE)
     Route: 042
  5. HYDROMORPHONE [Concomitant]
     Active Substance: HYDROMORPHONE
     Indication: POSTOPERATIVE ANALGESIA
     Dosage: UNK
     Route: 065
  6. LABETALOL [Suspect]
     Active Substance: LABETALOL\LABETALOL HYDROCHLORIDE
     Indication: HYPERTENSION
     Dosage: 20 MILLIGRAM
     Route: 042
  7. MAGNESIUM [Suspect]
     Active Substance: MAGNESIUM
     Indication: PRE-ECLAMPSIA
     Dosage: BOLUS DOSE
     Route: 042
  8. CLONIDINE. [Suspect]
     Active Substance: CLONIDINE
     Indication: HYPERTENSION
     Dosage: UNK
     Route: 065
  9. OXYTOCIN. [Concomitant]
     Active Substance: OXYTOCIN
     Indication: PRODUCT USED FOR UNKNOWN INDICATION
     Dosage: 18 U/H (16ML/H SODIUM CHLORIDE)
     Route: 042
  10. MAGNESIUM [Suspect]
     Active Substance: MAGNESIUM
     Dosage: MAINTENANCE DOSE
     Route: 042

REACTIONS (6)
  - Maternal exposure during pregnancy [Recovered/Resolved]
  - Toxicity to various agents [Recovering/Resolving]
  - Electrocardiogram QT prolonged [Recovered/Resolved]
  - Ventricular extrasystoles [Recovered/Resolved]
  - Electrocardiogram T wave peaked [Recovered/Resolved]
  - Hyperkalaemia [Recovered/Resolved]
